FAERS Safety Report 16255104 (Version 1)
Quarter: 2019Q2

REPORT INFORMATION
  Report Type: Spontaneous
  Country: PT (occurrence: PT)
  Receive Date: 20190430
  Receipt Date: 20190430
  Transmission Date: 20190711
  Serious: Yes (Other)
  Sender: FDA-Public Use
  Company Number: PT-ACCORD-124718

PATIENT
  Age: 27 Year
  Sex: Female

DRUGS (2)
  1. INSULIN [Concomitant]
     Active Substance: INSULIN NOS
     Indication: TYPE 1 DIABETES MELLITUS
     Route: 065
  2. ESCITALOPRAM [Suspect]
     Active Substance: ESCITALOPRAM OXALATE
     Indication: DEPRESSION
     Route: 065

REACTIONS (5)
  - Dystonia [Recovering/Resolving]
  - Gait disturbance [Recovering/Resolving]
  - Posture abnormal [Recovering/Resolving]
  - Condition aggravated [Recovering/Resolving]
  - Stiff person syndrome [Recovering/Resolving]
